FAERS Safety Report 23484362 (Version 10)
Quarter: 2025Q1

REPORT INFORMATION
  Report Type: Report from Study
  Country: JP (occurrence: JP)
  Receive Date: 20240206
  Receipt Date: 20250311
  Transmission Date: 20250408
  Serious: Yes (Life-Threatening, Hospitalization, Other)
  Sender: JOHNSON AND JOHNSON
  Company Number: JP-ACTELION-A-CH2018-179659

PATIENT
  Age: 37 Year
  Sex: Male
  Weight: 56.3 kg

DRUGS (46)
  1. OPSUMIT [Suspect]
     Active Substance: MACITENTAN
     Indication: Pulmonary arterial hypertension
     Dosage: 10 MG, QD
     Route: 048
     Dates: start: 20160713
  2. OPSUMIT [Suspect]
     Active Substance: MACITENTAN
     Indication: Pulmonary arterial hypertension
  3. EPOPROSTENOL [Suspect]
     Active Substance: EPOPROSTENOL
     Indication: Pulmonary arterial hypertension
     Dosage: UNK
     Route: 042
     Dates: start: 20190521, end: 2020
  4. EPOPROSTENOL [Suspect]
     Active Substance: EPOPROSTENOL
     Indication: Pulmonary arterial hypertension
     Dosage: UNK
     Route: 042
     Dates: start: 2020, end: 2023
  5. EPOPROSTENOL [Suspect]
     Active Substance: EPOPROSTENOL
     Dosage: UNK
     Route: 042
     Dates: start: 2023
  6. UPTRAVI [Suspect]
     Active Substance: SELEXIPAG
     Indication: Pulmonary arterial hypertension
     Dosage: 0.2 MG, BID
     Route: 048
     Dates: start: 20180124, end: 20180206
  7. UPTRAVI [Suspect]
     Active Substance: SELEXIPAG
     Indication: Pulmonary arterial hypertension
     Dosage: 0.4 MG, BID
     Route: 048
     Dates: start: 20180207, end: 20180220
  8. UPTRAVI [Suspect]
     Active Substance: SELEXIPAG
     Dosage: 0.6 MG, BID
     Route: 048
     Dates: start: 20180221, end: 20180306
  9. UPTRAVI [Suspect]
     Active Substance: SELEXIPAG
     Dosage: 0.8 MG, BID
     Route: 048
     Dates: start: 20180307, end: 20180327
  10. UPTRAVI [Suspect]
     Active Substance: SELEXIPAG
     Dosage: 1.0 MG, BID
     Route: 048
     Dates: start: 20180328, end: 20180410
  11. UPTRAVI [Suspect]
     Active Substance: SELEXIPAG
     Dosage: 1.2 MG, BID
     Route: 048
     Dates: start: 20180411, end: 20180424
  12. UPTRAVI [Suspect]
     Active Substance: SELEXIPAG
     Dosage: 1.4 MG, BID
     Route: 048
     Dates: start: 20180425, end: 20180508
  13. UPTRAVI [Suspect]
     Active Substance: SELEXIPAG
     Dosage: 1.6 MG, BID
     Route: 048
     Dates: start: 20180509, end: 20240422
  14. UPTRAVI [Suspect]
     Active Substance: SELEXIPAG
     Dosage: 2.4 MG, BID
     Route: 048
     Dates: start: 20240423
  15. UPTRAVI [Suspect]
     Active Substance: SELEXIPAG
     Dosage: 2.4 MG, BID
     Route: 048
     Dates: start: 2024
  16. TREPROSTINIL [Suspect]
     Active Substance: TREPROSTINIL
     Indication: Pulmonary arterial hypertension
     Route: 058
     Dates: start: 20160608, end: 20181201
  17. TREPROSTINIL [Suspect]
     Active Substance: TREPROSTINIL
     Indication: Pulmonary arterial hypertension
     Dosage: 90-120 NG/KG, PER MIN
     Route: 058
  18. TREPROSTINIL [Suspect]
     Active Substance: TREPROSTINIL
     Route: 058
     Dates: start: 2018, end: 201811
  19. TREPROSTINIL [Suspect]
     Active Substance: TREPROSTINIL
     Route: 058
  20. TREPROSTINIL [Suspect]
     Active Substance: TREPROSTINIL
     Route: 058
     Dates: end: 202106
  21. ADEMPAS [Concomitant]
     Active Substance: RIOCIGUAT
     Indication: Pulmonary arterial hypertension
     Dosage: 7.5 MG, QD
     Route: 048
     Dates: start: 20160713
  22. ADEMPAS [Concomitant]
     Active Substance: RIOCIGUAT
     Indication: Pulmonary arterial hypertension
  23. NASONEX [Concomitant]
     Active Substance: MOMETASONE FUROATE
     Indication: Seasonal allergy
     Dosage: UNK
     Route: 045
     Dates: start: 20171122, end: 20180124
  24. TRAMCET [Concomitant]
     Active Substance: ACETAMINOPHEN\TRAMADOL
     Indication: Pain
     Dosage: 9 DF, QD
     Route: 048
     Dates: start: 20160611, end: 20181205
  25. TRAMCET [Concomitant]
     Active Substance: ACETAMINOPHEN\TRAMADOL
     Dosage: 9 DF, QD
     Route: 048
     Dates: start: 20160611, end: 20181205
  26. NADIFLOXACIN [Concomitant]
     Active Substance: NADIFLOXACIN
     Indication: Folliculitis
     Dosage: UNKNOWN
     Route: 062
     Dates: start: 20190924
  27. PROCHLORPERAZINE MALEATE [Concomitant]
     Active Substance: PROCHLORPERAZINE MALEATE
  28. LOXOPROFEN SODIUM [Concomitant]
     Active Substance: LOXOPROFEN SODIUM
  29. PRIMPERAN [Concomitant]
     Active Substance: METOCLOPRAMIDE HYDROCHLORIDE
     Indication: Prophylaxis
     Route: 048
     Dates: start: 20200225
  30. REBAMIPIDE [Concomitant]
     Active Substance: REBAMIPIDE
  31. ACETAMINOPHEN [Concomitant]
     Active Substance: ACETAMINOPHEN
     Indication: Prophylaxis
     Route: 048
     Dates: start: 20200324
  32. BIO-THREE [Concomitant]
     Active Substance: HERBALS
  33. TRAMADOL [Concomitant]
     Active Substance: TRAMADOL
     Indication: Pain
     Dosage: 125 MG, QD
     Dates: start: 20160610, end: 20181204
  34. BELSOMRA [Concomitant]
     Active Substance: SUVOREXANT
  35. RABEPRAZOLE SODIUM [Concomitant]
     Active Substance: RABEPRAZOLE SODIUM
     Indication: Prophylaxis
     Route: 048
     Dates: start: 20200810
  36. OXYGEN [Concomitant]
     Active Substance: OXYGEN
  37. CEFCAPENE PIVOXIL HYDROCHLORIDE MONOHYDRATE [Concomitant]
     Active Substance: CEFCAPENE PIVOXIL HYDROCHLORIDE MONOHYDRATE
  38. BETAMETHASONE DIPROPIONATE [Concomitant]
     Active Substance: BETAMETHASONE DIPROPIONATE
     Indication: Dermatitis contact
     Dates: start: 20190827
  39. BETAMETHASONE DIPROPIONATE [Concomitant]
     Active Substance: BETAMETHASONE DIPROPIONATE
     Indication: Dermatitis
  40. ALLEGRA [Concomitant]
     Active Substance: FEXOFENADINE HYDROCHLORIDE
     Indication: Dermatitis contact
     Dosage: 120 MG, QD
     Dates: start: 20191029
  41. ALLEGRA [Concomitant]
     Active Substance: FEXOFENADINE HYDROCHLORIDE
     Indication: Dermatitis
  42. ACETAMINOPHEN [Concomitant]
     Active Substance: ACETAMINOPHEN
     Indication: Pyrexia
     Route: 048
     Dates: start: 202210
  43. ACETAMINOPHEN [Concomitant]
     Active Substance: ACETAMINOPHEN
     Dates: start: 20200324
  44. LASIX [Concomitant]
     Active Substance: FUROSEMIDE
     Indication: Prophylaxis
     Dates: start: 20200428
  45. MOSAPRIDE CITRATE [Concomitant]
     Active Substance: MOSAPRIDE CITRATE
     Indication: Prophylaxis
     Dates: start: 20200810
  46. SPIRONOLACTONE [Concomitant]
     Active Substance: SPIRONOLACTONE

REACTIONS (40)
  - Pulmonary hypertension [Unknown]
  - Infusion site pain [Recovering/Resolving]
  - Pulmonary arterial hypertension [Unknown]
  - COVID-19 [Not Recovered/Not Resolved]
  - Colon cancer [Not Recovered/Not Resolved]
  - Purulent discharge [Recovering/Resolving]
  - Nausea [Unknown]
  - Nausea [Recovered/Resolved]
  - Diarrhoea [Unknown]
  - Infusion site abscess [Recovering/Resolving]
  - Dermatitis contact [Recovering/Resolving]
  - Dermatitis [Recovering/Resolving]
  - Vomiting [Not Recovered/Not Resolved]
  - Vomiting [Recovering/Resolving]
  - Vomiting [Not Recovered/Not Resolved]
  - Headache [Recovering/Resolving]
  - Folliculitis [Recovering/Resolving]
  - Dermatitis [Recovered/Resolved]
  - Dermatitis acneiform [Recovering/Resolving]
  - Rash erythematous [Recovering/Resolving]
  - Insomnia [Not Recovered/Not Resolved]
  - Flushing [Unknown]
  - Abdominal pain upper [Recovering/Resolving]
  - Hypokalaemia [Recovered/Resolved]
  - Palpitations [Not Recovered/Not Resolved]
  - Weight decreased [Recovering/Resolving]
  - Inflammation [Recovered/Resolved]
  - Taste disorder [Recovered/Resolved]
  - Malaise [Not Recovered/Not Resolved]
  - Tachycardia [Not Recovered/Not Resolved]
  - Oxygen saturation decreased [Recovering/Resolving]
  - Blood potassium decreased [Not Recovered/Not Resolved]
  - Haemorrhage subcutaneous [Not Recovered/Not Resolved]
  - Skin laceration [Recovered/Resolved]
  - Pain in jaw [Unknown]
  - Pain in extremity [Not Recovered/Not Resolved]
  - Hypophagia [Recovering/Resolving]
  - Tachycardia [Recovering/Resolving]
  - Tachycardia [Recovering/Resolving]
  - Injection site infection [Unknown]

NARRATIVE: CASE EVENT DATE: 20180201
